FAERS Safety Report 13407583 (Version 2)
Quarter: 2017Q2

REPORT INFORMATION
  Report Type: Report from Study
  Country: CH (occurrence: CH)
  Receive Date: 20170405
  Receipt Date: 20170513
  Transmission Date: 20170830
  Serious: Yes (Other)
  Sender: FDA-Public Use
  Company Number: CH-BAXTER-2017BAX013947

PATIENT
  Age: 59 Year
  Sex: Female

DRUGS (155)
  1. ENDOXAN 1 G [Suspect]
     Active Substance: CYCLOPHOSPHAMIDE
     Dosage: C2D2
     Route: 042
     Dates: start: 20141119, end: 20141119
  2. ENDOXAN 1 G [Suspect]
     Active Substance: CYCLOPHOSPHAMIDE
     Dosage: C5D1
     Route: 042
     Dates: start: 20150302, end: 20150302
  3. FLUDARABINE [Suspect]
     Active Substance: FLUDARABINE PHOSPHATE
     Dosage: C2D2
     Route: 042
     Dates: start: 20141119, end: 20141119
  4. FLUDARABINE [Suspect]
     Active Substance: FLUDARABINE PHOSPHATE
     Dosage: C2D3
     Route: 042
     Dates: start: 20141120, end: 20141120
  5. FLUDARABINE [Suspect]
     Active Substance: FLUDARABINE PHOSPHATE
     Dosage: C3D1, DOSES OF FLUDARABINE AND CYCLOPHOSPHAMIDE FURTHER REDUCED DUE TO GRADE 3 NEUTROPENIA ON DAY 28
     Route: 042
     Dates: start: 20141217, end: 20141217
  6. FLUDARABINE [Suspect]
     Active Substance: FLUDARABINE PHOSPHATE
     Dosage: C5D1
     Route: 042
     Dates: start: 20150302, end: 20150302
  7. FLUDARABINE [Suspect]
     Active Substance: FLUDARABINE PHOSPHATE
     Dosage: C5D3
     Route: 042
     Dates: start: 20150304, end: 20150304
  8. ONDANSETRON [Concomitant]
     Active Substance: ONDANSETRON
     Dosage: SINGLE DOSE
     Route: 048
     Dates: start: 20141219, end: 20141219
  9. IPRATROPII BROMIDUM [Concomitant]
     Indication: PRODUCT USED FOR UNKNOWN INDICATION
     Route: 065
  10. PARACETAMOL [Concomitant]
     Active Substance: ACETAMINOPHEN
     Indication: PRODUCT USED FOR UNKNOWN INDICATION
     Route: 048
     Dates: start: 201310, end: 20141013
  11. PARACETAMOL [Concomitant]
     Active Substance: ACETAMINOPHEN
     Dosage: SINGLE DOSE
     Route: 048
     Dates: start: 20140929, end: 20140929
  12. METOCLOPRAMIDE. [Concomitant]
     Active Substance: METOCLOPRAMIDE
     Indication: PROPHYLAXIS
     Route: 048
     Dates: start: 20140929, end: 20150123
  13. METOCLOPRAMIDE. [Concomitant]
     Active Substance: METOCLOPRAMIDE
     Route: 048
     Dates: start: 20150115, end: 20150118
  14. METOCLOPRAMIDE. [Concomitant]
     Active Substance: METOCLOPRAMIDE
     Dosage: SINGLE DOSE
     Route: 042
     Dates: start: 20141006, end: 20141006
  15. METHYLPREDNISOLONE. [Concomitant]
     Active Substance: METHYLPREDNISOLONE
     Indication: PROPHYLAXIS
     Dosage: SINGLE DOSE
     Route: 042
     Dates: start: 20140929, end: 20140929
  16. METHYLPREDNISOLONE. [Concomitant]
     Active Substance: METHYLPREDNISOLONE
     Dosage: SINGLE DOSE
     Route: 042
     Dates: start: 20150302, end: 20150302
  17. DEXAMETHASONE. [Concomitant]
     Active Substance: DEXAMETHASONE
     Route: 065
     Dates: start: 20141006
  18. DEXAMETHASONE. [Concomitant]
     Active Substance: DEXAMETHASONE
     Route: 065
     Dates: start: 20141118
  19. RESYL PLUS [Concomitant]
     Active Substance: CODEINE PHOSPHATE\GUAIFENESIN
     Indication: PRODUCT USED FOR UNKNOWN INDICATION
     Route: 048
     Dates: end: 20150629
  20. TRAMADOL. [Concomitant]
     Active Substance: TRAMADOL
     Indication: PRODUCT USED FOR UNKNOWN INDICATION
     Route: 048
     Dates: start: 201310, end: 20141001
  21. ZOLPIDEM [Concomitant]
     Active Substance: ZOLPIDEM\ZOLPIDEM TARTRATE
     Indication: PRODUCT USED FOR UNKNOWN INDICATION
     Route: 048
     Dates: start: 2011, end: 20150423
  22. SULFAMETHOXAZOLE/TRIMETHOPRIM [Concomitant]
     Active Substance: SULFAMETHOXAZOLE\TRIMETHOPRIM
     Indication: PROPHYLAXIS
     Dosage: 800MG/160MG
     Route: 048
     Dates: start: 20140929, end: 20150423
  23. SODIUM CHLORIDE. [Concomitant]
     Active Substance: SODIUM CHLORIDE
     Dosage: SINGLE DOSE
     Route: 042
     Dates: start: 20140929, end: 20140929
  24. SODIUM CHLORIDE. [Concomitant]
     Active Substance: SODIUM CHLORIDE
     Dosage: SINGLE DOSE
     Route: 042
     Dates: start: 20141013, end: 20141013
  25. SODIUM CHLORIDE. [Concomitant]
     Active Substance: SODIUM CHLORIDE
     Dosage: SINGLE DOSE
     Route: 042
     Dates: start: 20141013, end: 20141013
  26. SODIUM CHLORIDE. [Concomitant]
     Active Substance: SODIUM CHLORIDE
     Dosage: SINGLE DOSE
     Route: 042
     Dates: start: 20141118, end: 20141118
  27. SIMETICON [Concomitant]
     Indication: PRODUCT USED FOR UNKNOWN INDICATION
     Route: 048
     Dates: start: 20150114, end: 20150211
  28. ENDOXAN 1 G [Suspect]
     Active Substance: CYCLOPHOSPHAMIDE
     Dosage: C2D3
     Route: 042
     Dates: start: 20141120, end: 20141120
  29. ENDOXAN 1 G [Suspect]
     Active Substance: CYCLOPHOSPHAMIDE
     Dosage: C4D1
     Route: 042
     Dates: start: 20150114, end: 20150114
  30. ENDOXAN 1 G [Suspect]
     Active Substance: CYCLOPHOSPHAMIDE
     Dosage: C6D2
     Route: 042
     Dates: start: 20150331, end: 20150331
  31. FLUDARABINE [Suspect]
     Active Substance: FLUDARABINE PHOSPHATE
     Dosage: C2D1, DOSE WAS REDUCED DUE TO NEUTROPENIA AND THROMBOCYTOPENIA
     Route: 042
     Dates: start: 20141118, end: 20141118
  32. OBINUTUZUMAB [Suspect]
     Active Substance: OBINUTUZUMAB
     Dosage: C5D1, INFUSION SOLUTION
     Route: 042
     Dates: start: 20150302, end: 20150302
  33. ONDANSETRON [Concomitant]
     Active Substance: ONDANSETRON
     Indication: PROPHYLAXIS
     Dosage: SINGLE DOSE
     Route: 048
     Dates: start: 20140929, end: 20140929
  34. ONDANSETRON [Concomitant]
     Active Substance: ONDANSETRON
     Dosage: SINGLE DOSE
     Route: 048
     Dates: start: 20141119, end: 20141119
  35. ONDANSETRON [Concomitant]
     Active Substance: ONDANSETRON
     Dosage: SINGLE DOSE
     Route: 048
     Dates: start: 20141217, end: 20141217
  36. ONDANSETRON [Concomitant]
     Active Substance: ONDANSETRON
     Dosage: SINGLE DOSE
     Route: 048
     Dates: start: 20141218, end: 20141218
  37. ONDANSETRON [Concomitant]
     Active Substance: ONDANSETRON
     Dosage: SINGLE DOSE
     Route: 048
     Dates: start: 20150114, end: 20150114
  38. ONDANSETRON [Concomitant]
     Active Substance: ONDANSETRON
     Dosage: SINGLE DOSE
     Route: 048
     Dates: start: 20150302, end: 20150302
  39. ONDANSETRON [Concomitant]
     Active Substance: ONDANSETRON
     Dosage: SINGLE DOSE
     Route: 048
     Dates: start: 20150401, end: 20150401
  40. SALBUTAMOLI SULFAS [Concomitant]
     Indication: PRODUCT USED FOR UNKNOWN INDICATION
     Route: 065
  41. PARACETAMOL [Concomitant]
     Active Substance: ACETAMINOPHEN
     Route: 048
     Dates: start: 20141013, end: 20150629
  42. METHYLPREDNISOLONE. [Concomitant]
     Active Substance: METHYLPREDNISOLONE
     Dosage: SINGLE DOSE
     Route: 042
     Dates: start: 20140930, end: 20140930
  43. BUTYLSCOPOLAMINE [Concomitant]
     Active Substance: BUTYLSCOPOLAMINE
     Indication: PRODUCT USED FOR UNKNOWN INDICATION
     Route: 048
     Dates: start: 20150405, end: 20150629
  44. MOMETASONA FUROATO [Concomitant]
     Indication: PRODUCT USED FOR UNKNOWN INDICATION
     Route: 045
     Dates: start: 20150701, end: 20150730
  45. SODIUM CHLORIDE. [Concomitant]
     Active Substance: SODIUM CHLORIDE
     Dosage: SINGLE DOSE
     Route: 042
     Dates: start: 20150115, end: 20150115
  46. SODIUM CHLORIDE. [Concomitant]
     Active Substance: SODIUM CHLORIDE
     Dosage: SINGLE DOSE
     Route: 042
     Dates: start: 20150116, end: 20150116
  47. SODIUM CHLORIDE. [Concomitant]
     Active Substance: SODIUM CHLORIDE
     Dosage: SINGLE DOSE
     Route: 042
     Dates: start: 20150302, end: 20150302
  48. SODIUM CHLORIDE. [Concomitant]
     Active Substance: SODIUM CHLORIDE
     Dosage: SINGLE DOSE
     Route: 042
     Dates: start: 20150331, end: 20150331
  49. FLUDARABINE [Suspect]
     Active Substance: FLUDARABINE PHOSPHATE
     Dosage: C4D3
     Route: 042
     Dates: start: 20150116, end: 20150116
  50. OBINUTUZUMAB [Suspect]
     Active Substance: OBINUTUZUMAB
     Dosage: C3D1, INFUSION SOLUTION
     Route: 042
     Dates: start: 20141217, end: 20141217
  51. ONDANSETRON [Concomitant]
     Active Substance: ONDANSETRON
     Dosage: SINGLE DOSE
     Route: 048
     Dates: start: 20150331, end: 20150331
  52. BUDESONID [Concomitant]
     Active Substance: BUDESONIDE
     Indication: PRODUCT USED FOR UNKNOWN INDICATION
     Route: 065
     Dates: start: 20160902
  53. PARACETAMOL [Concomitant]
     Active Substance: ACETAMINOPHEN
     Dosage: SINGLE DOSE
     Route: 048
     Dates: start: 20141118, end: 20141118
  54. PARACETAMOL [Concomitant]
     Active Substance: ACETAMINOPHEN
     Dosage: SINGLE DOSE
     Route: 048
     Dates: start: 20150114, end: 20150114
  55. PARACETAMOL [Concomitant]
     Active Substance: ACETAMINOPHEN
     Dosage: SINGLE DOSE
     Route: 048
     Dates: start: 20150330, end: 20150330
  56. PREDNISOLONE. [Concomitant]
     Active Substance: PREDNISOLONE
     Indication: PROPHYLAXIS
     Route: 048
     Dates: start: 20140922, end: 20140927
  57. METOCLOPRAMIDE. [Concomitant]
     Active Substance: METOCLOPRAMIDE
     Dosage: SINGLE DOSE
     Route: 042
     Dates: start: 20140929, end: 20140929
  58. CLEMASTINE [Concomitant]
     Active Substance: CLEMASTINE
     Indication: PROPHYLAXIS
     Dosage: SINGLE DOSE
     Route: 042
     Dates: start: 20140929, end: 20140929
  59. METHYLPREDNISOLONE. [Concomitant]
     Active Substance: METHYLPREDNISOLONE
     Dosage: SINGLE DOSE
     Route: 042
     Dates: start: 20150114, end: 20150114
  60. DEXAMETHASONE. [Concomitant]
     Active Substance: DEXAMETHASONE
     Route: 065
     Dates: start: 20140930
  61. LEVOFLOXACIN. [Concomitant]
     Active Substance: LEVOFLOXACIN
     Indication: PRODUCT USED FOR UNKNOWN INDICATION
     Route: 048
     Dates: start: 20150714, end: 20150718
  62. CAMPHOR [Concomitant]
     Active Substance: CAMPHOR
     Indication: PROPHYLAXIS
     Dosage: SOLUTION
     Route: 045
     Dates: start: 20140313
  63. SODIUM CHLORIDE. [Concomitant]
     Active Substance: SODIUM CHLORIDE
     Dosage: SINGLE DOSE
     Route: 042
     Dates: start: 20141119, end: 20141119
  64. SPASMO CANULASE [Concomitant]
     Indication: PRODUCT USED FOR UNKNOWN INDICATION
     Route: 048
     Dates: start: 20150114, end: 20150629
  65. ENDOXAN 1 G [Suspect]
     Active Substance: CYCLOPHOSPHAMIDE
     Dosage: C1D3
     Route: 042
     Dates: start: 20141001, end: 20141001
  66. ENDOXAN 1 G [Suspect]
     Active Substance: CYCLOPHOSPHAMIDE
     Dosage: C4D2
     Route: 042
     Dates: start: 20150115, end: 20150115
  67. ENDOXAN 1 G [Suspect]
     Active Substance: CYCLOPHOSPHAMIDE
     Dosage: C5D3
     Route: 042
     Dates: start: 20150304, end: 20150304
  68. ENDOXAN 1 G [Suspect]
     Active Substance: CYCLOPHOSPHAMIDE
     Dosage: C6D1
     Route: 042
     Dates: start: 20150330, end: 20150330
  69. FLUDARABINE [Suspect]
     Active Substance: FLUDARABINE PHOSPHATE
     Dosage: C3D2
     Route: 042
     Dates: start: 20141218, end: 20141218
  70. FLUDARABINE [Suspect]
     Active Substance: FLUDARABINE PHOSPHATE
     Dosage: C3D3
     Route: 042
     Dates: start: 20141219, end: 20141219
  71. FLUDARABINE [Suspect]
     Active Substance: FLUDARABINE PHOSPHATE
     Dosage: C4D2
     Route: 042
     Dates: start: 20150115, end: 20150115
  72. FLUDARABINE [Suspect]
     Active Substance: FLUDARABINE PHOSPHATE
     Dosage: C6D1
     Route: 042
     Dates: start: 20150330, end: 20150330
  73. OBINUTUZUMAB [Suspect]
     Active Substance: OBINUTUZUMAB
     Dosage: C1D8, INFUSION SOLUTION
     Route: 042
     Dates: start: 20141006, end: 20141006
  74. OBINUTUZUMAB [Suspect]
     Active Substance: OBINUTUZUMAB
     Dosage: C2D1, INFUSION SOLUTION
     Route: 042
     Dates: start: 20141118, end: 20141118
  75. OBINUTUZUMAB [Suspect]
     Active Substance: OBINUTUZUMAB
     Dosage: C4D1, INFUSION SOLUTION
     Route: 042
     Dates: start: 20150114, end: 20150114
  76. ONDANSETRON [Concomitant]
     Active Substance: ONDANSETRON
     Dosage: SINGLE DOSE
     Route: 048
     Dates: start: 20141001, end: 20141001
  77. ONDANSETRON [Concomitant]
     Active Substance: ONDANSETRON
     Dosage: SINGLE DOSE
     Route: 048
     Dates: start: 20150115, end: 20150115
  78. ONDANSETRON [Concomitant]
     Active Substance: ONDANSETRON
     Dosage: SINGLE DOSE
     Route: 048
     Dates: start: 20150116, end: 20150116
  79. ONDANSETRON [Concomitant]
     Active Substance: ONDANSETRON
     Dosage: SINGLE DOSE
     Route: 048
     Dates: start: 20150304, end: 20150304
  80. TRAZODONE [Concomitant]
     Active Substance: TRAZODONE HYDROCHLORIDE
     Indication: PRODUCT USED FOR UNKNOWN INDICATION
     Route: 065
     Dates: start: 2016
  81. PARACETAMOL [Concomitant]
     Active Substance: ACETAMINOPHEN
     Dosage: SINGLE DOSE
     Route: 048
     Dates: start: 20141013, end: 20141013
  82. VALACICLOVIR [Concomitant]
     Active Substance: VALACYCLOVIR HYDROCHLORIDE
     Indication: PROPHYLAXIS
     Route: 048
     Dates: start: 20140929
  83. CLEMASTINE [Concomitant]
     Active Substance: CLEMASTINE
     Dosage: SINGLE DOSE
     Route: 042
     Dates: start: 20141013, end: 20141013
  84. CLEMASTINE [Concomitant]
     Active Substance: CLEMASTINE
     Dosage: SINGLE DOSE
     Route: 042
     Dates: start: 20150330, end: 20150330
  85. METHYLPREDNISOLONE. [Concomitant]
     Active Substance: METHYLPREDNISOLONE
     Dosage: SINGLE DOSE
     Route: 042
     Dates: start: 20141006, end: 20141006
  86. METHYLPREDNISOLONE. [Concomitant]
     Active Substance: METHYLPREDNISOLONE
     Dosage: SINGLE DOSE
     Route: 042
     Dates: start: 20141118, end: 20141118
  87. DEXAMETHASONE. [Concomitant]
     Active Substance: DEXAMETHASONE
     Route: 065
     Dates: start: 20150302
  88. SODIUM CHLORIDE. [Concomitant]
     Active Substance: SODIUM CHLORIDE
     Dosage: SINGLE DOSE
     Route: 042
     Dates: start: 20140930, end: 20140930
  89. SODIUM CHLORIDE. [Concomitant]
     Active Substance: SODIUM CHLORIDE
     Dosage: SINGLE DOSE
     Route: 042
     Dates: start: 20141001, end: 20141001
  90. SODIUM CHLORIDE. [Concomitant]
     Active Substance: SODIUM CHLORIDE
     Dosage: SINGLE DOSE
     Route: 042
     Dates: start: 20141217, end: 20141217
  91. SODIUM CHLORIDE. [Concomitant]
     Active Substance: SODIUM CHLORIDE
     Dosage: SINGLE DOSE
     Route: 042
     Dates: start: 20150304, end: 20150304
  92. SODIUM CHLORIDE. [Concomitant]
     Active Substance: SODIUM CHLORIDE
     Dosage: SINGLE DOSE
     Route: 042
     Dates: start: 20150330, end: 20150330
  93. ENDOXAN 1 G [Suspect]
     Active Substance: CYCLOPHOSPHAMIDE
     Dosage: C1D2
     Route: 042
     Dates: start: 20140930, end: 20140930
  94. FLUDARABINE [Suspect]
     Active Substance: FLUDARABINE PHOSPHATE
     Dosage: C6D3, LAST DOSE PRIOR TO SAE
     Route: 042
     Dates: start: 20150401, end: 20150401
  95. ONDANSETRON [Concomitant]
     Active Substance: ONDANSETRON
     Dosage: SINGLE DOSE
     Route: 048
     Dates: start: 20141118, end: 20141118
  96. ONDANSETRON [Concomitant]
     Active Substance: ONDANSETRON
     Dosage: SINGLE DOSE
     Route: 048
     Dates: start: 20141120, end: 20141120
  97. ALLOPURINOL. [Concomitant]
     Active Substance: ALLOPURINOL
     Indication: PROPHYLAXIS
     Route: 048
     Dates: start: 20140922, end: 20141013
  98. CLEMASTINE [Concomitant]
     Active Substance: CLEMASTINE
     Dosage: SINGLE DOSE
     Route: 042
     Dates: start: 20140930, end: 20140930
  99. CLEMASTINE [Concomitant]
     Active Substance: CLEMASTINE
     Dosage: SINGLE DOSE
     Route: 042
     Dates: start: 20141217, end: 20141217
  100. TRAMADOL. [Concomitant]
     Active Substance: TRAMADOL
     Route: 048
     Dates: start: 20141001, end: 20141006
  101. SODIUM CHLORIDE. [Concomitant]
     Active Substance: SODIUM CHLORIDE
     Dosage: SINGLE DOSE
     Route: 042
     Dates: start: 20141001, end: 20141001
  102. SODIUM CHLORIDE. [Concomitant]
     Active Substance: SODIUM CHLORIDE
     Dosage: SINGLE DOSE
     Route: 042
     Dates: start: 20141218, end: 20141218
  103. SODIUM CHLORIDE. [Concomitant]
     Active Substance: SODIUM CHLORIDE
     Dosage: SINGLE DOSE
     Route: 042
     Dates: start: 20150401, end: 20150401
  104. ENDOXAN 1 G [Suspect]
     Active Substance: CYCLOPHOSPHAMIDE
     Dosage: C3D1, DOSES OF FLUDARABINE AND CYCLOPHOSPHAMIDE FURTHER REDUCED DUE TO GRADE 3 NEUTROPENIA ON DAY 28
     Route: 042
     Dates: start: 20141217, end: 20141217
  105. ENDOXAN 1 G [Suspect]
     Active Substance: CYCLOPHOSPHAMIDE
     Dosage: C5D2
     Route: 042
     Dates: start: 20150303, end: 20150303
  106. ENDOXAN 1 G [Suspect]
     Active Substance: CYCLOPHOSPHAMIDE
     Dosage: C6D3, LAST DOSE PRIOR TO SAE
     Route: 042
     Dates: start: 20150401, end: 20150401
  107. FLUDARABINE [Suspect]
     Active Substance: FLUDARABINE PHOSPHATE
     Indication: CHRONIC LYMPHOCYTIC LEUKAEMIA
     Dosage: C1D1, INFUSION, EVERY DAY ON DAYS 1 TO 3 OF EACH 28-DAY CYCLE FROM CYCLE 1 TO CYCLE 6 AS PER INVESTI
     Route: 042
     Dates: start: 20140929, end: 20140929
  108. FLUDARABINE [Suspect]
     Active Substance: FLUDARABINE PHOSPHATE
     Dosage: C1D3
     Route: 042
     Dates: start: 20141001, end: 20141001
  109. FLUDARABINE [Suspect]
     Active Substance: FLUDARABINE PHOSPHATE
     Dosage: C4D1
     Route: 042
     Dates: start: 20150114, end: 20150114
  110. FLUDARABINE [Suspect]
     Active Substance: FLUDARABINE PHOSPHATE
     Dosage: C6D2
     Route: 042
     Dates: start: 20150331, end: 20150331
  111. OBINUTUZUMAB [Suspect]
     Active Substance: OBINUTUZUMAB
     Dosage: C1D2, INFUSION SOLUTION, INFUSION RATE 400
     Route: 042
     Dates: start: 20140930, end: 20140930
  112. OBINUTUZUMAB [Suspect]
     Active Substance: OBINUTUZUMAB
     Dosage: C1D15, INFUSION SOLUTION
     Route: 042
     Dates: start: 20141013, end: 20141013
  113. ONDANSETRON [Concomitant]
     Active Substance: ONDANSETRON
     Dosage: SINGLE DOSE
     Route: 048
     Dates: start: 20150303, end: 20150303
  114. DEXAMETHASONE. [Concomitant]
     Active Substance: DEXAMETHASONE
     Route: 065
     Dates: start: 20141217
  115. DEXAMETHASONE. [Concomitant]
     Active Substance: DEXAMETHASONE
     Route: 065
     Dates: start: 20150114
  116. SODIUM CHLORIDE. [Concomitant]
     Active Substance: SODIUM CHLORIDE
     Dosage: SINGLE DOSE
     Route: 042
     Dates: start: 20141006, end: 20141006
  117. SODIUM CHLORIDE. [Concomitant]
     Active Substance: SODIUM CHLORIDE
     Dosage: SINGLE DOSE
     Route: 042
     Dates: start: 20141118, end: 20141118
  118. SODIUM CHLORIDE. [Concomitant]
     Active Substance: SODIUM CHLORIDE
     Dosage: SINGLE DOSE
     Route: 042
     Dates: start: 20150114, end: 20150114
  119. SODIUM CHLORIDE. [Concomitant]
     Active Substance: SODIUM CHLORIDE
     Dosage: SINGLE DOSE
     Route: 042
     Dates: start: 20150303, end: 20150303
  120. ENDOXAN 1 G [Suspect]
     Active Substance: CYCLOPHOSPHAMIDE
     Dosage: C2D1, DOSE WAS REDUCED DUE TO NEUTROPENIA AND THROMBOCYTOPENIA
     Route: 042
     Dates: start: 20141118, end: 20141118
  121. ENDOXAN 1 G [Suspect]
     Active Substance: CYCLOPHOSPHAMIDE
     Dosage: C3D2
     Route: 042
     Dates: start: 20141218, end: 20141218
  122. ENDOXAN 1 G [Suspect]
     Active Substance: CYCLOPHOSPHAMIDE
     Dosage: C3D3
     Route: 042
     Dates: start: 20141219, end: 20141219
  123. FLUDARABINE [Suspect]
     Active Substance: FLUDARABINE PHOSPHATE
     Dosage: C5D2
     Route: 042
     Dates: start: 20150303, end: 20150303
  124. OBINUTUZUMAB [Suspect]
     Active Substance: OBINUTUZUMAB
     Dosage: C1D1, INFUSION SOLUTION, INFUSION RATE 25
     Route: 042
     Dates: start: 20140929, end: 20140929
  125. OBINUTUZUMAB [Suspect]
     Active Substance: OBINUTUZUMAB
     Dosage: C6D1, INFUSION SOLUTION, LAST DOSE PRIOR TO GRADE 4 LATE ONSET NEUTROPENIA AND GRADE 3 UNCLEAR AUTOI
     Route: 042
     Dates: start: 20150330, end: 20150330
  126. ONDANSETRON [Concomitant]
     Active Substance: ONDANSETRON
     Dosage: SINGLE DOSE
     Route: 048
     Dates: start: 20150330, end: 20150330
  127. FORMOTEROL FUMARATE, BUDESONIDE [Concomitant]
     Indication: PRODUCT USED FOR UNKNOWN INDICATION
     Dosage: INHALATION, 0.2/0.006 MG
     Route: 045
     Dates: start: 20150105, end: 20150123
  128. PARACETAMOL [Concomitant]
     Active Substance: ACETAMINOPHEN
     Dosage: SINGLE DOSE
     Route: 048
     Dates: start: 20141217, end: 20141217
  129. METHYLPREDNISOLONE. [Concomitant]
     Active Substance: METHYLPREDNISOLONE
     Dosage: SINGLE DOSE
     Route: 042
     Dates: start: 20150330, end: 20150330
  130. DEXAMETHASONE. [Concomitant]
     Active Substance: DEXAMETHASONE
     Indication: PROPHYLAXIS
     Route: 065
     Dates: start: 20140928, end: 20140928
  131. DEXAMETHASONE. [Concomitant]
     Active Substance: DEXAMETHASONE
     Indication: PREMEDICATION
     Route: 065
     Dates: start: 20140929
  132. DEXAMETHASONE. [Concomitant]
     Active Substance: DEXAMETHASONE
     Route: 065
     Dates: start: 20141013
  133. DEXAMETHASONE. [Concomitant]
     Active Substance: DEXAMETHASONE
     Route: 065
     Dates: start: 20150330
  134. ACICLOVIR [Concomitant]
     Active Substance: ACYCLOVIR
     Indication: PROPHYLAXIS
     Route: 061
     Dates: start: 20140917, end: 20140922
  135. OTRIVINE [Concomitant]
     Active Substance: XYLOMETAZOLINE HYDROCHLORIDE
     Indication: PRODUCT USED FOR UNKNOWN INDICATION
     Route: 045
     Dates: start: 20150701, end: 20150730
  136. TRAMADOL. [Concomitant]
     Active Substance: TRAMADOL
     Route: 048
     Dates: start: 20141006, end: 20150629
  137. PEPPERMINT OIL [Concomitant]
     Active Substance: PEPPERMINT OIL
     Indication: PROPHYLAXIS
     Route: 045
     Dates: start: 20140313
  138. SODIUM CHLORIDE. [Concomitant]
     Active Substance: SODIUM CHLORIDE
     Dosage: SINGLE DOSE
     Route: 042
     Dates: start: 20150114, end: 20150114
  139. SODIUM CHLORIDE. [Concomitant]
     Active Substance: SODIUM CHLORIDE
     Dosage: SINGLE DOSE
     Route: 042
     Dates: start: 20150330, end: 20150330
  140. ENDOXAN 1 G [Suspect]
     Active Substance: CYCLOPHOSPHAMIDE
     Indication: CHRONIC LYMPHOCYTIC LEUKAEMIA
     Dosage: C1D1,INFUSION, EVERY DAY ON DAYS 1 TO 3 OF EACH 28-DAY CYCLE FROM CYCLE 1 TO CYCLE 6 AS PER INVESTIG
     Route: 042
     Dates: start: 20140929, end: 20140929
  141. ENDOXAN 1 G [Suspect]
     Active Substance: CYCLOPHOSPHAMIDE
     Dosage: C4D3
     Route: 042
     Dates: start: 20150116, end: 20150116
  142. FLUDARABINE [Suspect]
     Active Substance: FLUDARABINE PHOSPHATE
     Dosage: C1D2
     Route: 042
     Dates: start: 20140930, end: 20140930
  143. OBINUTUZUMAB [Suspect]
     Active Substance: OBINUTUZUMAB
     Indication: CHRONIC LYMPHOCYTIC LEUKAEMIA
     Dosage: C1D1, INFUSION SOLUTION, INFUSION RATE 25, FREQUENCY: 1000 MG IV INFUSION ON DAYS 1/2 (DOSE SPLIT OV
     Route: 042
     Dates: start: 20140929, end: 20140929
  144. ONDANSETRON [Concomitant]
     Active Substance: ONDANSETRON
     Dosage: SINGLE DOSE
     Route: 048
     Dates: start: 20140930, end: 20140930
  145. ONDANSETRON [Concomitant]
     Active Substance: ONDANSETRON
     Route: 048
     Dates: start: 20150123, end: 20150211
  146. PARACETAMOL [Concomitant]
     Active Substance: ACETAMINOPHEN
     Dosage: SINGLE DOSE
     Route: 048
     Dates: start: 20140930, end: 20140930
  147. METHYLPREDNISOLONE. [Concomitant]
     Active Substance: METHYLPREDNISOLONE
     Dosage: SINGLE DOSE
     Route: 042
     Dates: start: 20141013, end: 20141013
  148. METHYLPREDNISOLONE. [Concomitant]
     Active Substance: METHYLPREDNISOLONE
     Dosage: SINGLE DOSE
     Route: 042
     Dates: start: 20141217, end: 20141217
  149. SODIUM CHLORIDE. [Concomitant]
     Active Substance: SODIUM CHLORIDE
     Indication: PRODUCT USED FOR UNKNOWN INDICATION
     Dosage: SINGLE DOSE
     Route: 042
     Dates: start: 20140929, end: 20140929
  150. SODIUM CHLORIDE. [Concomitant]
     Active Substance: SODIUM CHLORIDE
     Dosage: SINGLE DOSE
     Route: 042
     Dates: start: 20140930, end: 20140930
  151. SODIUM CHLORIDE. [Concomitant]
     Active Substance: SODIUM CHLORIDE
     Dosage: SINGLE DOSE
     Route: 042
     Dates: start: 20141217, end: 20141217
  152. SODIUM CHLORIDE. [Concomitant]
     Active Substance: SODIUM CHLORIDE
     Dosage: SINGLE DOSE
     Route: 042
     Dates: start: 20141219, end: 20141219
  153. SODIUM CHLORIDE. [Concomitant]
     Active Substance: SODIUM CHLORIDE
     Dosage: SINGLE DOSE
     Route: 042
     Dates: start: 20150114, end: 20150114
  154. SODIUM CHLORIDE. [Concomitant]
     Active Substance: SODIUM CHLORIDE
     Dosage: SINGLE DOSE
     Route: 042
     Dates: start: 20150302, end: 20150302
  155. BIOFLORIN [Concomitant]
     Indication: PRODUCT USED FOR UNKNOWN INDICATION
     Route: 065

REACTIONS (7)
  - Neutropenia [Recovered/Resolved]
  - Bronchiectasis [Unknown]
  - Neutropenia [Recovered/Resolved]
  - Neutropenia [Recovered/Resolved]
  - Autoimmune disorder [Not Recovered/Not Resolved]
  - Thrombocytopenia [Unknown]
  - Colitis microscopic [Unknown]

NARRATIVE: CASE EVENT DATE: 20141214
